FAERS Safety Report 19878819 (Version 12)
Quarter: 2025Q1

REPORT INFORMATION
  Report Type: Report from Study
  Country: JP (occurrence: JP)
  Receive Date: 20210924
  Receipt Date: 20250211
  Transmission Date: 20250409
  Serious: Yes (Death, Hospitalization, Other)
  Sender: TAKEDA
  Company Number: JP-TAKEDA-2021TJP090838

PATIENT
  Age: 57 Year
  Sex: Male

DRUGS (15)
  1. TEDUGLUTIDE [Suspect]
     Active Substance: TEDUGLUTIDE
     Indication: Short-bowel syndrome
  2. TEDUGLUTIDE [Suspect]
     Active Substance: TEDUGLUTIDE
     Dosage: 0.025 MILLIGRAM/KILOGRAM, QD
     Dates: start: 20210908
  3. TEDUGLUTIDE [Suspect]
     Active Substance: TEDUGLUTIDE
  4. TEDUGLUTIDE [Suspect]
     Active Substance: TEDUGLUTIDE
  5. STELARA [Concomitant]
     Active Substance: USTEKINUMAB
  6. VONOPRAZAN FUMARATE [Concomitant]
     Active Substance: VONOPRAZAN FUMARATE
  7. LOPEMIN [Concomitant]
  8. PAPAVER SOMNIFERUM TINCTURE [Concomitant]
  9. MIYA-BM [Concomitant]
     Active Substance: CLOSTRIDIUM BUTYRICUM SPORES STRAIN M-55
  10. ETIZOLAM [Concomitant]
     Active Substance: ETIZOLAM
  11. MICARDIS [Concomitant]
     Active Substance: TELMISARTAN
  12. CALBLOCK [Concomitant]
     Active Substance: AZELNIDIPINE
  13. CALONAL [Concomitant]
     Active Substance: ACETAMINOPHEN
  14. ACOTIAMIDE HYDROCHLORIDE [Concomitant]
     Active Substance: ACOTIAMIDE HYDROCHLORIDE
  15. AMINO ACIDS\DEXTROSE\ELECTROLYTES NOS\MINERALS\VITAMINS [Concomitant]
     Active Substance: AMINO ACIDS\DEXTROSE\ELECTROLYTES NOS\MINERALS\VITAMINS

REACTIONS (15)
  - Death [Fatal]
  - Duodenal ulcer haemorrhage [Recovered/Resolved]
  - Anaemia [Recovering/Resolving]
  - Malaise [Unknown]
  - Diarrhoea [Unknown]
  - Physical deconditioning [Unknown]
  - Abdominal pain [Recovered/Resolved]
  - Nausea [Recovered/Resolved]
  - Abdominal distension [Recovered/Resolved]
  - Injection site bruising [Unknown]
  - Diarrhoea [Recovering/Resolving]
  - Dehydration [Recovered/Resolved]
  - Administration site induration [Recovering/Resolving]
  - Insomnia [Recovering/Resolving]
  - Product dose omission issue [Recovered/Resolved]

NARRATIVE: CASE EVENT DATE: 20210901
